FAERS Safety Report 17718998 (Version 1)
Quarter: 2020Q2

REPORT INFORMATION
  Report Type: Spontaneous
  Country: US (occurrence: US)
  Receive Date: 20200428
  Receipt Date: 20200428
  Transmission Date: 20200714
  Serious: No
  Sender: FDA-Public Use
  Company Number: US-ARRAY-2020-07818

PATIENT

DRUGS (4)
  1. MEKTOVI [Suspect]
     Active Substance: BINIMETINIB
     Dosage: UNK
  2. MEKTOVI [Suspect]
     Active Substance: BINIMETINIB
     Indication: CHOLANGIOCARCINOMA
     Dosage: 45 MG, BID
     Route: 048
  3. BRAFTOVI [Suspect]
     Active Substance: ENCORAFENIB
     Dosage: UNK
  4. BRAFTOVI [Suspect]
     Active Substance: ENCORAFENIB
     Indication: CHOLANGIOCARCINOMA
     Dosage: 450 MG, QD
     Route: 048

REACTIONS (3)
  - Nausea [Unknown]
  - Vomiting [Unknown]
  - Product use in unapproved indication [Unknown]
